FAERS Safety Report 11639075 (Version 1)
Quarter: 2015Q4

REPORT INFORMATION
  Report Type: Spontaneous
  Country: BE (occurrence: BE)
  Receive Date: 20151018
  Receipt Date: 20151018
  Transmission Date: 20160304
  Serious: Yes (Hospitalization, Other)
  Sender: FDA-Public Use
  Company Number: BE-CIPLA LTD.-2015BE07954

PATIENT

DRUGS (3)
  1. LAMOTRIGINE. [Suspect]
     Active Substance: LAMOTRIGINE
     Indication: BIPOLAR DISORDER
     Dosage: 75 MG, QD
     Route: 065
  2. LAMOTRIGINE. [Suspect]
     Active Substance: LAMOTRIGINE
     Dosage: 3.5 G, UNK
     Route: 065
  3. REPAGLINIDE. [Concomitant]
     Active Substance: REPAGLINIDE
     Route: 065

REACTIONS (5)
  - Bundle branch block left [Recovered/Resolved]
  - Suicide attempt [Unknown]
  - Unresponsive to stimuli [Unknown]
  - Sinus tachycardia [Recovered/Resolved]
  - Intentional overdose [Unknown]
